FAERS Safety Report 5023541-5 (Version None)
Quarter: 2006Q2

REPORT INFORMATION
  Report Type: 
  Country: None (occurrence: None)
  Receive Date: 20060606
  Receipt Date: 20060523
  Transmission Date: 20061013
  Serious: Yes (Hospitalization)
  Sender: FDA-Public Use
  Company Number: DE200605005583

PATIENT
  Age: 47 Year
  Sex: Female

DRUGS (6)
  1. SOMATROPIN (SOMATROPIN) VIAL [Suspect]
     Indication: CYST
     Dosage: 0.7 MG
  2. LEVOTHYROXINE SODIUM [Concomitant]
  3. HYDROCORTISONE [Concomitant]
  4. MINIRIN [Concomitant]
  5. PRESOMEN (ESTROGENS CONJUGATED) [Concomitant]
  6. EZETROL /GFR/(EZETIMIBE) [Concomitant]

REACTIONS (1)
  - CHOLELITHIASIS [None]
